FAERS Safety Report 9415211 (Version 1)
Quarter: 2013Q3

REPORT INFORMATION
  Report Type: Report from Study
  Country: US (occurrence: US)
  Receive Date: 20130723
  Receipt Date: 20130723
  Transmission Date: 20140515
  Serious: Yes (Other)
  Sender: FDA-Public Use
  Company Number: US-ASTRAZENECA-2013SE52658

PATIENT
  Age: 46 Year
  Sex: Female
  Weight: 71.2 kg

DRUGS (9)
  1. NEXIUM [Suspect]
     Route: 048
  2. LISINOPRIL [Suspect]
     Route: 048
     Dates: end: 2008
  3. TOPROL-XL [Suspect]
     Indication: HYPERTENSION
     Route: 048
  4. CRESTOR [Suspect]
     Indication: BLOOD CHOLESTEROL INCREASED
     Route: 048
  5. CRESTOR [Suspect]
     Indication: BLOOD CHOLESTEROL INCREASED
     Route: 048
  6. ASPIRIN [Concomitant]
     Indication: AORTIC CALCIFICATION
     Dates: start: 2013
  7. ASPIRIN [Concomitant]
     Indication: AORTIC CALCIFICATION
     Dates: start: 2013
  8. FUROSEMIDE [Concomitant]
     Indication: SWELLING
     Dates: end: 2012
  9. ALPRAZOLAM [Concomitant]
     Indication: ANXIETY

REACTIONS (14)
  - Pharyngeal oedema [Unknown]
  - Osteomyelitis [Unknown]
  - Osteomyelitis [Not Recovered/Not Resolved]
  - Chondritis [Unknown]
  - Pleurisy [Unknown]
  - Drug hypersensitivity [Unknown]
  - Throat irritation [Unknown]
  - Inflammation [Unknown]
  - Hypertension [Unknown]
  - Tooth loss [Unknown]
  - Infection [Unknown]
  - Drug ineffective [Unknown]
  - Intentional drug misuse [Not Recovered/Not Resolved]
  - Off label use [Not Recovered/Not Resolved]
